FAERS Safety Report 4627642-2 (Version None)
Quarter: 2005Q2

REPORT INFORMATION
  Report Type: 
  Country: None (occurrence: None)
  Receive Date: 20050401
  Receipt Date: 20050401
  Transmission Date: 20051028
  Serious: Yes (Hospitalization)
  Sender: FDA-Public Use
  Company Number: None

PATIENT
  Age: 34 Year
  Sex: Female
  Weight: 49 kg

DRUGS (3)
  1. TARCEVA [Suspect]
     Indication: LUNG NEOPLASM MALIGNANT
     Dosage: 150 MG 1 Q DAY PO
     Route: 048
     Dates: start: 20041004
  2. PACLITAXEL [Suspect]
     Indication: LUNG NEOPLASM MALIGNANT
     Dosage: 73 MG 1 Q WK X 3 IV
     Route: 042
     Dates: start: 20040628, end: 20040712
  3. CARBOPLATIN [Suspect]
     Indication: LUNG NEOPLASM MALIGNANT
     Dosage: 235 MG 1 Q WK X3 IV
     Route: 042
     Dates: start: 20040628, end: 20040712

REACTIONS (2)
  - HIP FRACTURE [None]
  - PATHOLOGICAL FRACTURE [None]
